FAERS Safety Report 20125401 (Version 3)
Quarter: 2022Q2

REPORT INFORMATION
  Report Type: Spontaneous
  Country: DE (occurrence: DE)
  Receive Date: 20211129
  Receipt Date: 20220531
  Transmission Date: 20220720
  Serious: Yes (Hospitalization, Other)
  Sender: FDA-Public Use
  Company Number: DE-Phoenix Labs Unlimited Company-DE-P18030-21-00129

PATIENT
  Age: 82 Year
  Sex: Female

DRUGS (8)
  1. ZOLEDRONIC ACID [Suspect]
     Active Substance: ZOLEDRONIC ACID
     Indication: Metastases to bone
     Dosage: 4 MILLIGRAM, Q28D
     Route: 065
     Dates: start: 20190911, end: 20210602
  2. EXEMESTANE [Suspect]
     Active Substance: EXEMESTANE
     Indication: Breast cancer metastatic
     Dosage: 25 MILLIGRAM, QD
     Route: 048
     Dates: start: 20190503
  3. EXEMESTANE [Suspect]
     Active Substance: EXEMESTANE
     Dosage: 25 MILLIGRAM, QD
     Route: 048
     Dates: start: 20190506
  4. KISQALI [Suspect]
     Active Substance: RIBOCICLIB
     Indication: Breast cancer metastatic
     Dosage: 600 MILLIGRAM, QD
     Route: 048
     Dates: start: 20190503
  5. KISQALI [Suspect]
     Active Substance: RIBOCICLIB
     Dosage: 600 MILLIGRAM, QD
     Route: 048
     Dates: start: 20190506
  6. FENTANYL [Concomitant]
     Active Substance: FENTANYL
     Indication: Product used for unknown indication
     Dosage: UNK
     Dates: start: 20210419
  7. METAMIZOLE [Concomitant]
     Active Substance: METAMIZOLE
     Indication: Product used for unknown indication
     Dosage: UNK
  8. METAMIZOLE [Concomitant]
     Active Substance: METAMIZOLE
     Dosage: UNK
     Dates: start: 20190506

REACTIONS (1)
  - Acute kidney injury [Unknown]

NARRATIVE: CASE EVENT DATE: 20210624
